FAERS Safety Report 7666929-6 (Version None)
Quarter: 2011Q3

REPORT INFORMATION
  Report Type: 
  Country: None (occurrence: None)
  Receive Date: 20110806
  Receipt Date: 20110301
  Transmission Date: 20111222
  Serious: No
  Sender: FDA-Public Use
  Company Number: US-ABBOTT-11P-163-0708335-00

PATIENT
  Sex: Male
  Weight: 102.15 kg

DRUGS (5)
  1. NIASPAN [Suspect]
     Dosage: AT BEDTIME
  2. SOMA [Concomitant]
     Indication: BACK PAIN
  3. IBUPROFEN [Concomitant]
     Indication: TENDONITIS
  4. NIASPAN [Suspect]
     Indication: BLOOD CHOLESTEROL INCREASED
     Dosage: AT BEDTIME
     Dates: start: 20090201
  5. NIASPAN [Suspect]
     Dosage: AT BEDTIME

REACTIONS (5)
  - FLUSHING [None]
  - BURNING SENSATION [None]
  - PRURITUS [None]
  - INSOMNIA [None]
  - PARAESTHESIA [None]
